FAERS Safety Report 6296740-2 (Version None)
Quarter: 2009Q3

REPORT INFORMATION
  Report Type: 
  Country: None (occurrence: None)
  Receive Date: 20090804
  Receipt Date: 20090727
  Transmission Date: 20100115
  Serious: Yes (Hospitalization)
  Sender: FDA-Public Use
  Company Number: DE-AVENTIS-200911007DE

PATIENT
  Age: 69 Year
  Sex: Female

DRUGS (10)
  1. DOCETAXEL [Suspect]
     Dosage: DOSE: 75 MG/M**2
     Route: 042
     Dates: start: 20070917, end: 20070917
  2. ADRIAMYCIN PFS [Suspect]
     Dosage: DOSE: 50MG/M**2
     Route: 042
     Dates: start: 20070917, end: 20070917
  3. CYCLOPHOSPHAMIDE [Suspect]
     Dosage: DOSE: 500 MG/M**2
     Route: 042
     Dates: start: 20070917, end: 20070917
  4. FORTECORTIN                        /00016001/ [Suspect]
     Indication: ANTIEMETIC SUPPORTIVE CARE
     Route: 048
     Dates: start: 20070920, end: 20070922
  5. FORTECORTIN                        /00016001/ [Suspect]
     Route: 042
     Dates: start: 20070919, end: 20070919
  6. AMPHOTERICIN B [Concomitant]
     Indication: DRUG USE FOR UNKNOWN INDICATION
     Dosage: DOSE: NOT REPORTED
  7. ERYPO                              /00928302/ [Concomitant]
     Indication: DRUG USE FOR UNKNOWN INDICATION
     Dosage: DOSE: NOT REPORTED
  8. IBUPROFEN [Concomitant]
     Indication: DRUG USE FOR UNKNOWN INDICATION
     Dosage: DOSE: NOT REPORTED
  9. UROMITEXAN [Concomitant]
     Indication: DRUG USE FOR UNKNOWN INDICATION
     Dosage: DOSE: NOT REPORTED
  10. EMEND [Concomitant]
     Indication: DRUG USE FOR UNKNOWN INDICATION
     Dosage: DOSE: NOT REPORTED

REACTIONS (2)
  - ADJUSTMENT DISORDER [None]
  - MANIA [None]
